FAERS Safety Report 4730137-9 (Version None)
Quarter: 2005Q3

REPORT INFORMATION
  Report Type: 
  Country: None (occurrence: None)
  Receive Date: 20050801
  Receipt Date: 20050603
  Transmission Date: 20060218
  Serious: Yes (Hospitalization)
  Sender: FDA-Public Use
  Company Number: 200511660JP

PATIENT
  Age: 73 Year
  Sex: Male

DRUGS (3)
  1. DAONIL [Suspect]
     Indication: DIABETES MELLITUS
     Route: 048
     Dates: start: 20020422
  2. TAMIFLU [Suspect]
     Indication: INFLUENZA
     Route: 048
     Dates: start: 20050308, end: 20050312
  3. MELBIN [Concomitant]
     Indication: DIABETES MELLITUS
     Route: 048
     Dates: start: 20020422

REACTIONS (3)
  - INTERSTITIAL LUNG DISEASE [None]
  - PNEUMONIA BACTERIAL [None]
  - PNEUMONIA INFLUENZAL [None]
